FAERS Safety Report 7076537-6 (Version None)
Quarter: 2010Q4

REPORT INFORMATION
  Report Type: 
  Country: None (occurrence: None)
  Receive Date: 20101101
  Receipt Date: 20101020
  Transmission Date: 20110411
  Serious: Yes (Other)
  Sender: FDA-Public Use
  Company Number: FR-PFIZER INC-2010133085

PATIENT
  Age: 71 Year
  Sex: Female

DRUGS (3)
  1. LYRICA [Suspect]
     Indication: NEURALGIA
     Dosage: UNK
     Dates: start: 20100701, end: 20100823
  2. TAHOR [Concomitant]
     Dosage: UNK
  3. AVLOCARDYL [Concomitant]
     Dosage: UNK

REACTIONS (8)
  - CONSTIPATION [None]
  - FATIGUE [None]
  - HYPOGLYCAEMIA [None]
  - LOSS OF CONSCIOUSNESS [None]
  - MALAISE [None]
  - URINE OUTPUT DECREASED [None]
  - VERTIGO [None]
  - WITHDRAWAL SYNDROME [None]
